FAERS Safety Report 26162172 (Version 1)
Quarter: 2025Q4

REPORT INFORMATION
  Report Type: Spontaneous
  Country: EU (occurrence: EU)
  Receive Date: 20251216
  Receipt Date: 20251216
  Transmission Date: 20260117
  Serious: Yes (Other)
  Sender: STRIDES
  Company Number: EU-STRIDES ARCOLAB LIMITED-2025SP015559

PATIENT
  Age: 49 Year
  Sex: Female

DRUGS (10)
  1. MONTELUKAST [Suspect]
     Active Substance: MONTELUKAST
     Indication: Symptomatic treatment
     Dosage: UNK
     Route: 065
  2. MONTELUKAST [Suspect]
     Active Substance: MONTELUKAST
     Indication: Indolent systemic mastocytosis
  3. METOCLOPRAMIDE [Suspect]
     Active Substance: METOCLOPRAMIDE
     Indication: Migraine
     Dosage: UNK
     Route: 065
  4. IBUPROFEN [Suspect]
     Active Substance: IBUPROFEN
     Indication: Migraine
     Dosage: UNK
     Route: 065
  5. CIMETIDINE [Suspect]
     Active Substance: CIMETIDINE
     Indication: Symptomatic treatment
     Dosage: UNK
     Route: 065
  6. CIMETIDINE [Suspect]
     Active Substance: CIMETIDINE
     Indication: Indolent systemic mastocytosis
  7. CROMOLYN SODIUM [Suspect]
     Active Substance: CROMOLYN SODIUM
     Indication: Symptomatic treatment
     Dosage: UNK
     Route: 048
  8. CROMOLYN SODIUM [Suspect]
     Active Substance: CROMOLYN SODIUM
     Indication: Indolent systemic mastocytosis
  9. DIPYRONE [Suspect]
     Active Substance: DIPYRONE
     Indication: Migraine
     Dosage: UNK
     Route: 065
  10. ERENUMAB [Suspect]
     Active Substance: ERENUMAB
     Indication: Migraine prophylaxis
     Dosage: UNK
     Route: 065

REACTIONS (3)
  - Condition aggravated [Unknown]
  - Drug ineffective for unapproved indication [Unknown]
  - Off label use [Unknown]
